FAERS Safety Report 8177588-0 (Version None)
Quarter: 2012Q1

REPORT INFORMATION
  Report Type: 
  Country: None (occurrence: None)
  Receive Date: 20120301
  Receipt Date: 20120222
  Transmission Date: 20120608
  Serious: Yes (Other)
  Sender: FDA-Public Use
  Company Number: PHEH2012US004486

PATIENT
  Sex: Female
  Weight: 95.238 kg

DRUGS (13)
  1. ADDERALL 5 [Concomitant]
  2. LOVAZA [Concomitant]
  3. PREVACID [Concomitant]
  4. VITAMIN B GROUP [Concomitant]
  5. VITAMIN D [Concomitant]
  6. LISINOPRIL [Concomitant]
  7. KLONOPIN [Concomitant]
  8. LORTAB [Concomitant]
  9. XANAX [Concomitant]
  10. GILENYA [Suspect]
     Indication: RELAPSING-REMITTING MULTIPLE SCLEROSIS
     Dosage: 0.5 MG, QD
     Route: 048
     Dates: start: 20110608, end: 20120201
  11. HYDROCHLOROTHIAZIDE [Concomitant]
  12. OPAMA [Concomitant]
  13. LUNESTA [Concomitant]

REACTIONS (2)
  - PERICARDITIS [None]
  - CHEST PAIN [None]
